FAERS Safety Report 15750835 (Version 1)
Quarter: 2018Q4

REPORT INFORMATION
  Report Type: Spontaneous
  Country: US (occurrence: US)
  Receive Date: 20181221
  Receipt Date: 20181221
  Transmission Date: 20190205
  Serious: Yes (Other)
  Sender: FDA-Public Use
  Company Number: None

PATIENT
  Age: 32 Year
  Sex: Male
  Weight: 79.38 kg

DRUGS (1)
  1. BUPRENORPHINE/NALOXONE, 8 MG [Suspect]
     Active Substance: BUPRENORPHINE\NALOXONE
     Indication: DRUG DEPENDENCE
     Dates: start: 20181105, end: 20181221

REACTIONS (3)
  - Aptyalism [None]
  - Product solubility abnormal [None]
  - Compulsions [None]

NARRATIVE: CASE EVENT DATE: 20181221
